FAERS Safety Report 4542799-X (Version None)
Quarter: 2004Q4

REPORT INFORMATION
  Report Type: 
  Country: None (occurrence: None)
  Receive Date: 20041229
  Receipt Date: 20041216
  Transmission Date: 20050328
  Serious: Yes (Hospitalization)
  Sender: FDA-Public Use
  Company Number: EM2004-0650

PATIENT
  Sex: Female

DRUGS (7)
  1. PROLEUKIN [Suspect]
     Indication: MALIGNANT MELANOMA
     Dosage: SEE IMAGE
     Dates: start: 20041214, end: 20041216
  2. PROLEUKIN [Suspect]
     Indication: MALIGNANT MELANOMA
     Dosage: SEE IMAGE
     Dates: start: 20041214, end: 20041217
  3. PROLEUKIN [Suspect]
     Indication: MALIGNANT MELANOMA
     Dosage: SEE IMAGE
     Dates: start: 20041217, end: 20041217
  4. DECADRON [Concomitant]
  5. INDOCIN [Concomitant]
  6. ACETAMINOPHEN [Concomitant]
  7. ANTIEMETICS AND ANTINAUSEANTS [Concomitant]

REACTIONS (7)
  - BONE PAIN [None]
  - DRUG INEFFECTIVE [None]
  - HYPOTENSION [None]
  - PAIN IN EXTREMITY [None]
  - PYREXIA [None]
  - RASH [None]
  - WEIGHT INCREASED [None]
